FAERS Safety Report 13054262 (Version 4)
Quarter: 2017Q2

REPORT INFORMATION
  Report Type: Report from Study
  Country: BE (occurrence: BE)
  Receive Date: 20161222
  Receipt Date: 20170406
  Transmission Date: 20170830
  Serious: Yes (Other)
  Sender: FDA-Public Use
  Company Number: BE-PFIZER INC-2016591314

PATIENT
  Age: 68 Year
  Sex: Female

DRUGS (5)
  1. PALBOCICLIB [Suspect]
     Active Substance: PALBOCICLIB
     Dosage: 125 MG, CYCLIC PER DAY 3WEEKS ON/1 WEEKS OFF
     Route: 048
     Dates: start: 20170202, end: 20170222
  2. PALBOCICLIB [Suspect]
     Active Substance: PALBOCICLIB
     Indication: BREAST CANCER
     Dosage: 125 MG, CYCLIC PER DAY 3WEEKS ON/1 WEEKS OFF
     Route: 048
     Dates: start: 20161110, end: 20161123
  3. PALBOCICLIB [Suspect]
     Active Substance: PALBOCICLIB
     Dosage: 125 MG, CYCLIC PER DAY 3WEEKS ON/1 WEEKS OFF
     Route: 048
     Dates: start: 20161229, end: 20170119
  4. COVERSYL /00790702/ [Concomitant]
     Active Substance: PERINDOPRIL
     Indication: CARDIAC FAILURE
     Dosage: 5 MG, DAILY
     Route: 048
     Dates: start: 20150307
  5. BURINEX [Concomitant]
     Active Substance: BUMETANIDE
     Indication: FLUID RETENTION
     Dosage: 1 MG, DAILY
     Route: 048
     Dates: start: 20150307

REACTIONS (2)
  - Neutropenia [Recovered/Resolved]
  - Pancytopenia [Recovered/Resolved]

NARRATIVE: CASE EVENT DATE: 20161122
